FAERS Safety Report 6730494-8 (Version None)
Quarter: 2010Q2

REPORT INFORMATION
  Report Type: 
  Country: None (occurrence: None)
  Receive Date: 20100514
  Receipt Date: 20100429
  Transmission Date: 20101027
  Serious: Yes (Other)
  Sender: FDA-Public Use
  Company Number: 09-AUR-09586

PATIENT
  Age: 60 Year
  Sex: Male

DRUGS (6)
  1. AMOXICILLIN [Suspect]
     Indication: LOWER RESPIRATORY TRACT INFECTION
     Dosage: 500MG - UNK - ORAL
     Route: 048
     Dates: start: 20090221
  2. PABRINEX [Suspect]
     Indication: ALCOHOL WITHDRAWAL SYNDROME
     Dosage: UNK - UNK - IV
     Route: 042
     Dates: start: 20090221
  3. CREON [Concomitant]
  4. DIAZEPAM [Concomitant]
  5. OMEPRAZOLE [Concomitant]
  6. SALBUTAMOL [Concomitant]

REACTIONS (3)
  - DRUG HYPERSENSITIVITY [None]
  - PERIORBITAL OEDEMA [None]
  - URTICARIA [None]
